FAERS Safety Report 10203930 (Version 2)
Quarter: 2016Q1

REPORT INFORMATION
  Report Type: Spontaneous
  Country: GB (occurrence: GB)
  Receive Date: 20140529
  Receipt Date: 20160218
  Transmission Date: 20160525
  Serious: Yes (Disabling, Congenital Anomaly)
  Sender: FDA-Public Use
  Company Number: PHHY2014GB064704

PATIENT
  Sex: Female
  Weight: 3.2 kg

DRUGS (12)
  1. MIRTAZAPINE. [Suspect]
     Active Substance: MIRTAZAPINE
     Indication: SCHIZOPHRENIA
     Dosage: 300 MG, QD
     Route: 064
  2. ARIPIPRAZOLE. [Suspect]
     Active Substance: ARIPIPRAZOLE
     Indication: SCHIZOPHRENIA
     Dosage: 30 MG, QD
     Route: 064
  3. LAMOTRIGINE. [Suspect]
     Active Substance: LAMOTRIGINE
     Indication: SCHIZOPHRENIA
     Dosage: 300 MG, QD
     Route: 064
  4. ZOPICLONE [Suspect]
     Active Substance: ZOPICLONE
     Indication: SCHIZOPHRENIA
     Route: 064
  5. MIRTAZAPINE. [Suspect]
     Active Substance: MIRTAZAPINE
     Dosage: 300 MG, QD
     Route: 064
  6. VENTOLIN [Concomitant]
     Active Substance: ALBUTEROL SULFATE
     Route: 064
     Dates: start: 20131129
  7. CLARITHROMYCIN. [Concomitant]
     Active Substance: CLARITHROMYCIN
     Route: 064
     Dates: start: 20131129
  8. CEFALEXIN [Concomitant]
     Active Substance: CEPHALEXIN
     Indication: URINARY TRACT INFECTION
     Route: 064
     Dates: start: 20130827
  9. LAMOTRIGINE. [Suspect]
     Active Substance: LAMOTRIGINE
     Dosage: 300 MG, QD
     Route: 064
  10. NICORETTE [Concomitant]
     Active Substance: NICOTINE
     Route: 064
     Dates: start: 20130808
  11. CYCLIZINE [Concomitant]
     Active Substance: CYCLIZINE
     Route: 064
     Dates: start: 20130902
  12. PROCYCLIDINE [Suspect]
     Active Substance: PROCYCLIDINE
     Indication: SCHIZOPHRENIA
     Dosage: 5 MG, QD
     Route: 064

REACTIONS (5)
  - Developmental hip dysplasia [Unknown]
  - Agitation neonatal [Unknown]
  - Muscular weakness [Unknown]
  - Foetal exposure during pregnancy [Unknown]
  - Selective eating disorder [Unknown]

NARRATIVE: CASE EVENT DATE: 201402
